FAERS Safety Report 5501631-8 (Version None)
Quarter: 2007Q4

REPORT INFORMATION
  Report Type: 
  Country: None (occurrence: None)
  Receive Date: 20071030
  Receipt Date: 20071018
  Transmission Date: 20080405
  Serious: Yes (Hospitalization, Other)
  Sender: FDA-Public Use
  Company Number: US-ELI_LILLY_AND_COMPANY-US200710001102

PATIENT
  Sex: Male
  Weight: 68.481 kg

DRUGS (4)
  1. FORTEO [Suspect]
     Indication: OSTEOPOROSIS
     Dates: start: 20061021
  2. HUMALOG MIX 50/50 [Suspect]
  3. HUMALOG MIX 75/25 [Suspect]
  4. ALTACE [Concomitant]
     Indication: HYPERTENSION

REACTIONS (5)
  - ASTHENIA [None]
  - BRADYCARDIA [None]
  - CARDIAC FAILURE CHRONIC [None]
  - CAROTID ARTERY OCCLUSION [None]
  - FATIGUE [None]
